FAERS Safety Report 17172206 (Version 1)
Quarter: 2019Q4

REPORT INFORMATION
  Report Type: Report from Study
  Country: BE (occurrence: BE)
  Receive Date: 20191218
  Receipt Date: 20191218
  Transmission Date: 20200122
  Serious: Yes (Disabling)
  Sender: FDA-Public Use
  Company Number: BE-NAPPMUNDI-GBR-2019-0073734

PATIENT
  Age: 64 Year
  Sex: Male

DRUGS (3)
  1. MORPHINE SULFATE. [Suspect]
     Active Substance: MORPHINE SULFATE
     Indication: PRODUCT USED FOR UNKNOWN INDICATION
     Dosage: UNK
     Route: 065
  2. REBIF [Suspect]
     Active Substance: INTERFERON BETA-1A
     Dosage: 44 MCG, UNK (0.33 WEEK)
     Route: 058
     Dates: start: 20171016, end: 20190417
  3. REBIF [Suspect]
     Active Substance: INTERFERON BETA-1A
     Indication: MULTIPLE SCLEROSIS
     Dosage: 22 MCG, UNK (0.33 WEEK)
     Route: 058
     Dates: start: 20191113

REACTIONS (6)
  - Drug hypersensitivity [Unknown]
  - Muscle spasms [Recovering/Resolving]
  - Mobility decreased [Not Recovered/Not Resolved]
  - Head discomfort [Not Recovered/Not Resolved]
  - Dizziness [Unknown]
  - Injection site pruritus [Not Recovered/Not Resolved]
